FAERS Safety Report 19220221 (Version 4)
Quarter: 2021Q4

REPORT INFORMATION
  Report Type: Spontaneous
  Country: US (occurrence: US)
  Receive Date: 20210506
  Receipt Date: 20211112
  Transmission Date: 20220303
  Serious: No
  Sender: FDA-Public Use
  Company Number: US-SUN PHARMACEUTICAL INDUSTRIES LTD-2021R1-289111

PATIENT
  Sex: Male
  Weight: 96.054 kg

DRUGS (10)
  1. EPOPROSTENOL [Suspect]
     Active Substance: EPOPROSTENOL
     Indication: Pulmonary arterial hypertension
     Dosage: 11 NG/KG/MIN
     Route: 042
     Dates: start: 20210313
  2. EPOPROSTENOL [Suspect]
     Active Substance: EPOPROSTENOL
     Dosage: 17 NG/KG/MIN CONTINUOUS
     Route: 042
     Dates: start: 20210313
  3. EPOPROSTENOL [Suspect]
     Active Substance: EPOPROSTENOL
     Dosage: 9 NG/KG/MIN
     Route: 042
     Dates: start: 20210413
  4. EPOPROSTENOL [Suspect]
     Active Substance: EPOPROSTENOL
     Dosage: 9 NG/KG/MIN
     Route: 042
     Dates: start: 20210413
  5. EPOPROSTENOL [Suspect]
     Active Substance: EPOPROSTENOL
     Dosage: 9.5 NG/KG/MIN
     Route: 042
     Dates: start: 20210413
  6. XARELTO [Concomitant]
     Active Substance: RIVAROXABAN
     Indication: Product used for unknown indication
     Dosage: UNK
     Route: 065
  7. TYVASO [Concomitant]
     Active Substance: TREPROSTINIL
     Indication: Product used for unknown indication
     Dosage: UNK
     Route: 065
  8. VELETRI [Concomitant]
     Active Substance: EPOPROSTENOL
     Indication: Product used for unknown indication
     Dosage: UNK
     Route: 065
  9. VELETRI [Concomitant]
     Active Substance: EPOPROSTENOL
     Dosage: 9NG/KG/MIN
     Route: 065
     Dates: start: 2021
  10. VELETRI [Concomitant]
     Active Substance: EPOPROSTENOL
     Dosage: 8NG/KG/MIN
     Route: 065
     Dates: start: 2021

REACTIONS (7)
  - Vomiting [Unknown]
  - Malaise [Unknown]
  - Headache [Unknown]
  - Nausea [Unknown]
  - Product administration error [Unknown]
  - Dyspnoea [Unknown]
  - Neck pain [Unknown]

NARRATIVE: CASE EVENT DATE: 20210101
